FAERS Safety Report 6228892-4 (Version None)
Quarter: 2009Q2

REPORT INFORMATION
  Report Type: 
  Country: None (occurrence: None)
  Receive Date: 20090615
  Receipt Date: 20090608
  Transmission Date: 20091009
  Serious: Yes (Hospitalization)
  Sender: FDA-Public Use
  Company Number: US-BRISTOL-MYERS SQUIBB COMPANY-14657506

PATIENT
  Age: 78 Year
  Sex: Female

DRUGS (17)
  1. KENALOG [Suspect]
     Indication: ARTHRITIS
     Route: 014
     Dates: start: 20090410, end: 20090410
  2. CALCIUM + VITAMIN D [Concomitant]
     Indication: SUPPLEMENTATION THERAPY
     Route: 048
     Dates: start: 19990101
  3. L-LYSINE [Concomitant]
     Indication: SUPPLEMENTATION THERAPY
     Route: 048
     Dates: start: 19990101
  4. VITAMIN B COMPLEX + C [Concomitant]
     Indication: SUPPLEMENTATION THERAPY
     Route: 048
     Dates: start: 19990101
  5. MYLANTA [Concomitant]
     Indication: GASTRIC ULCER
     Route: 048
     Dates: start: 19940101
  6. PHENAZOPYRIDINE HCL TAB [Concomitant]
     Indication: DYSURIA
     Route: 048
     Dates: start: 20080901
  7. PROPOXYPHENE HCL CAP [Concomitant]
     Indication: NEUROPATHY PERIPHERAL
     Route: 048
     Dates: start: 20040101
  8. LYRICA [Concomitant]
     Indication: NEUROPATHY PERIPHERAL
     Route: 048
     Dates: start: 20040101
  9. SUCRALFATE [Concomitant]
     Indication: GASTRIC ULCER
     Route: 048
     Dates: start: 19990101
  10. GEMFIBROZIL [Concomitant]
     Indication: HYPERCHOLESTEROLAEMIA
     Route: 048
     Dates: start: 20050101
  11. LORATADINE [Concomitant]
     Indication: SEASONAL ALLERGY
     Route: 048
     Dates: start: 19990101
  12. FUROSEMIDE [Concomitant]
     Indication: HYPERTENSION
     Route: 048
     Dates: start: 20080801
  13. GLIPIZIDE [Concomitant]
     Indication: DIABETES MELLITUS
     Route: 048
     Dates: start: 20070101
  14. METOPROLOL SUCCINATE [Concomitant]
     Indication: HYPERTENSION
     Route: 048
     Dates: start: 20050101
  15. PROTONIX [Concomitant]
     Indication: GASTROOESOPHAGEAL REFLUX DISEASE
     Route: 048
     Dates: start: 20060101
  16. PREMARIN [Concomitant]
     Indication: POSTMENOPAUSE
     Route: 048
     Dates: start: 20040101
  17. FLUTICASONE PROPIONATE [Concomitant]
     Indication: SEASONAL ALLERGY
     Route: 045
     Dates: start: 19990101

REACTIONS (1)
  - DIABETES MELLITUS [None]
